FAERS Safety Report 12890240 (Version 1)
Quarter: 2016Q4

REPORT INFORMATION
  Report Type: Spontaneous
  Country: US (occurrence: US)
  Receive Date: 20161027
  Receipt Date: 20161027
  Transmission Date: 20170207
  Serious: Yes (Other)
  Sender: FDA-Public Use
  Company Number: US-NOVOPROD-515891

PATIENT
  Age: 22 Year
  Sex: Female
  Weight: 99.77 kg

DRUGS (1)
  1. SAXENDA [Suspect]
     Active Substance: LIRAGLUTIDE
     Indication: WEIGHT DECREASED
     Dosage: 1.8 MG, QD
     Route: 058
     Dates: start: 201607, end: 201609

REACTIONS (1)
  - Gallbladder non-functioning [Not Recovered/Not Resolved]

NARRATIVE: CASE EVENT DATE: 201608
